FAERS Safety Report 7402753-7 (Version None)
Quarter: 2011Q2

REPORT INFORMATION
  Report Type: 
  Country: None (occurrence: None)
  Receive Date: 20110408
  Receipt Date: 20110331
  Transmission Date: 20111010
  Serious: Yes (Other)
  Sender: FDA-Public Use
  Company Number: IE-MEDIMMUNE-MEDI-0012675

PATIENT

DRUGS (7)
  1. SYNAGIS [Suspect]
     Indication: PROPHYLAXIS
     Route: 030
     Dates: start: 20110202, end: 20110202
  2. SYNAGIS [Suspect]
     Route: 030
     Dates: start: 20110202
  3. FUROSEMIDE [Concomitant]
     Indication: CARDIAC DISORDER
     Route: 048
     Dates: start: 20100514
  4. FUROSEMIDE [Concomitant]
     Indication: RESPIRATORY DISORDER
  5. IPRATROPIUM BROMIDE [Concomitant]
     Route: 055
     Dates: start: 20100514
  6. ALBUTEROL SULFATE AUTOHALER [Concomitant]
     Route: 055
     Dates: start: 20100514
  7. SILDENAFIL [Concomitant]
     Indication: PULMONARY HYPERTENSION
     Route: 048
     Dates: start: 20100514

REACTIONS (8)
  - BRONCHIOLITIS [None]
  - WHEEZING [None]
  - PNEUMONIA ASPIRATION [None]
  - LUNG CONSOLIDATION [None]
  - WOUND ABSCESS [None]
  - PYREXIA [None]
  - IRRITABILITY [None]
  - RESPIRATORY SYNCYTIAL VIRUS INFECTION [None]
